FAERS Safety Report 24656289 (Version 1)
Quarter: 2024Q4

REPORT INFORMATION
  Report Type: Spontaneous
  Country: US (occurrence: US)
  Receive Date: 20241124
  Receipt Date: 20241124
  Transmission Date: 20250115
  Serious: No
  Sender: MERCK
  Company Number: US-009507513-2411USA002174

PATIENT
  Sex: Female

DRUGS (2)
  1. JANUVIA [Suspect]
     Active Substance: SITAGLIPTIN PHOSPHATE
     Indication: Diabetes mellitus
     Dosage: UNK
     Route: 048
     Dates: start: 2023
  2. GLIPIZIDE [Concomitant]
     Active Substance: GLIPIZIDE
     Indication: Diabetes mellitus
     Dosage: UNK, LOW DOSE

REACTIONS (3)
  - Glycosylated haemoglobin abnormal [Unknown]
  - Weight increased [Unknown]
  - Constipation [Unknown]
